FAERS Safety Report 9628832 (Version 1)
Quarter: 2013Q4

REPORT INFORMATION
  Report Type: Spontaneous
  Country: US (occurrence: US)
  Receive Date: 20131017
  Receipt Date: 20131017
  Transmission Date: 20140711
  Serious: No
  Sender: FDA-Public Use
  Company Number: US-GLAXOSMITHKLINE-A0995784A

PATIENT
  Age: 11 Year
  Sex: Female

DRUGS (3)
  1. CEFTIN [Suspect]
     Indication: SINUSITIS
     Dosage: 250MG TWICE PER DAY
     Route: 048
     Dates: start: 20120928
  2. VERAMYST NASAL SPRAY [Concomitant]
  3. FLOVENT [Concomitant]

REACTIONS (1)
  - Nausea [Unknown]
